FAERS Safety Report 9381855 (Version 1)
Quarter: 2013Q3

REPORT INFORMATION
  Report Type: Report from Study
  Country: US (occurrence: US)
  Receive Date: 20130703
  Receipt Date: 20130703
  Transmission Date: 20140515
  Serious: Yes (Disabling)
  Sender: FDA-Public Use
  Company Number: US-ROCHE-1240768

PATIENT
  Sex: Female

DRUGS (8)
  1. LUCENTIS [Suspect]
     Indication: EYE INFLAMMATION
     Dosage: RIGHT EYE
     Route: 065
     Dates: start: 201301
  2. LUCENTIS [Suspect]
     Dosage: HAD FIRST INJECTION IN LEFT EYE^FRIDAY^
     Route: 065
  3. COREG [Concomitant]
  4. CYMBALTA [Concomitant]
     Indication: FIBROMYALGIA
  5. PROVASCUL [Concomitant]
     Indication: BLOOD CHOLESTEROL
  6. NEURONTIN (UNITED STATES) [Concomitant]
     Indication: RESTLESS LEGS SYNDROME
  7. BABY ASPIRIN [Concomitant]
     Route: 065
  8. NOVOLIN REGULAR INSULIN [Concomitant]
     Indication: DIABETES MELLITUS
     Route: 065

REACTIONS (3)
  - Visual acuity reduced [Not Recovered/Not Resolved]
  - Eye inflammation [Not Recovered/Not Resolved]
  - Eye haemorrhage [Recovered/Resolved]
